FAERS Safety Report 7440507-6 (Version None)
Quarter: 2011Q2

REPORT INFORMATION
  Report Type: 
  Country: None (occurrence: None)
  Receive Date: 20110427
  Receipt Date: 20110418
  Transmission Date: 20111010
  Serious: Yes (Other)
  Sender: FDA-Public Use
  Company Number: US-ABBOTT-11P-163-0721210-00

PATIENT
  Sex: Male
  Weight: 83.99 kg

DRUGS (7)
  1. TRICOR [Suspect]
     Indication: BLOOD TRIGLYCERIDES INCREASED
     Dates: start: 20070101, end: 20110101
  2. LOVAZA [Concomitant]
     Indication: SUPPLEMENTATION THERAPY
  3. ASPIRIN [Concomitant]
     Indication: FLUSHING
     Dosage: DAILY DOSE: 325MG
  4. NIASPAN [Suspect]
     Indication: HIGH DENSITY LIPOPROTEIN DECREASED
     Dates: start: 20110201
  5. ASPIRIN [Concomitant]
     Indication: PROPHYLAXIS
  6. DIOVAN [Concomitant]
     Indication: HYPERTENSION
  7. PRAVASTATIN [Concomitant]
     Indication: PRODUCT USED FOR UNKNOWN INDICATION

REACTIONS (5)
  - GALLBLADDER PAIN [None]
  - PARAESTHESIA [None]
  - COMPUTERISED TOMOGRAM CORONARY ARTERY ABNORMAL [None]
  - PRURITUS [None]
  - FLUSHING [None]
